FAERS Safety Report 5315227-4 (Version None)
Quarter: 2007Q2

REPORT INFORMATION
  Report Type: 
  Country: None (occurrence: None)
  Receive Date: 20070502
  Receipt Date: 20070420
  Transmission Date: 20071010
  Serious: Yes (Other)
  Sender: FDA-Public Use
  Company Number: US-PFIZER INC-2007026645

PATIENT
  Sex: Female
  Weight: 59 kg

DRUGS (3)
  1. CHANTIX [Suspect]
     Dates: start: 20070101, end: 20070403
  2. CARTIA XT [Concomitant]
  3. VITAMINS [Concomitant]

REACTIONS (4)
  - HYPERSENSITIVITY [None]
  - NAUSEA [None]
  - RASH [None]
  - SWELLING [None]
